FAERS Safety Report 6272798-1 (Version None)
Quarter: 2009Q3

REPORT INFORMATION
  Report Type: 
  Country: None (occurrence: None)
  Receive Date: 20090717
  Receipt Date: 20090710
  Transmission Date: 20100115
  Serious: Yes (Death, Hospitalization)
  Sender: FDA-Public Use
  Company Number: JP-AMGEN-US356102

PATIENT
  Age: 62 Year
  Sex: Female

DRUGS (3)
  1. ENBREL [Suspect]
     Indication: RHEUMATOID ARTHRITIS
     Route: 058
     Dates: end: 20090623
  2. ENBREL [Suspect]
     Dosage: PREVIOUSLY ON LYOPHILIZED 50 MG WEEKLY
     Route: 058
     Dates: start: 20070824
  3. PREDNISOLONE [Concomitant]
     Indication: RHEUMATOID ARTHRITIS
     Route: 048

REACTIONS (2)
  - CARDIAC FAILURE ACUTE [None]
  - PNEUMOCYSTIS JIROVECI PNEUMONIA [None]
